FAERS Safety Report 4836495-9 (Version None)
Quarter: 2005Q4

REPORT INFORMATION
  Report Type: 
  Country: None (occurrence: None)
  Receive Date: 20051118
  Receipt Date: 20051107
  Transmission Date: 20060501
  Serious: Yes (Hospitalization, Other)
  Sender: FDA-Public Use
  Company Number: 2005153430

PATIENT
  Age: 43 Year
  Sex: Female

DRUGS (3)
  1. ZOLOFT [Suspect]
     Indication: MAJOR DEPRESSION
     Dosage: 200 MG (1 IN 1 D), ORAL
     Route: 048
     Dates: start: 20050101, end: 20051001
  2. ZOLOFT [Suspect]
     Indication: PANIC DISORDER
     Dosage: 200 MG (1 IN 1 D), ORAL
     Route: 048
     Dates: start: 20050101, end: 20051001
  3. LEXOTANIL (BROMAZEPAM) [Concomitant]

REACTIONS (2)
  - DEHYDRATION [None]
  - DIARRHOEA [None]
